FAERS Safety Report 21323061 (Version 2)
Quarter: 2022Q4

REPORT INFORMATION
  Report Type: Spontaneous
  Country: US (occurrence: US)
  Receive Date: 20220912
  Receipt Date: 20221118
  Transmission Date: 20230112
  Serious: Yes (Other)
  Sender: FDA-Public Use
  Company Number: US-BRISTOL-MYERS SQUIBB COMPANY-2022-102512

PATIENT
  Age: 70 Year
  Sex: Female

DRUGS (2)
  1. REVLIMID [Suspect]
     Active Substance: LENALIDOMIDE
     Indication: Product used for unknown indication
     Route: 048
  2. REVLIMID [Suspect]
     Active Substance: LENALIDOMIDE
     Dosage: FREQUENCY WAS GIVEN AS OTHER
     Route: 048

REACTIONS (6)
  - Lethargy [Unknown]
  - Hypoaesthesia [Unknown]
  - Eating disorder [Unknown]
  - Dehydration [Unknown]
  - Hypotension [Unknown]
  - Syncope [Unknown]
